FAERS Safety Report 7593808-5 (Version None)
Quarter: 2011Q3

REPORT INFORMATION
  Report Type: 
  Country: None (occurrence: None)
  Receive Date: 20110706
  Receipt Date: 20110624
  Transmission Date: 20111222
  Serious: Yes (Hospitalization)
  Sender: FDA-Public Use
  Company Number: PHFR2011GB00791

PATIENT
  Sex: Male

DRUGS (6)
  1. DIPROSALIC [Concomitant]
     Indication: ECZEMA
     Dosage: 1 DF, QD
     Route: 061
  2. PROCYCLIDINE HYDROCHLORIDE 2MG TAB [Concomitant]
     Dosage: 5 MG, BID
     Route: 065
  3. CLOZAPINE [Suspect]
     Indication: SCHIZOPHRENIA
     Dosage: 25 MG MANE 100 MG NOCTE
     Route: 048
     Dates: start: 19960122, end: 20110127
  4. CYCLOSPORINE [Concomitant]
     Indication: ECZEMA
     Dosage: 75 MG, BID
     Route: 048
  5. PREDNISOLONE [Concomitant]
     Indication: ECZEMA
     Dosage: 15 MG, QD
     Route: 048
  6. AZATHIOPRINE [Concomitant]
     Dosage: UNK
     Dates: start: 20101215, end: 20110118

REACTIONS (5)
  - NEUTROPHIL COUNT DECREASED [None]
  - MENTAL DISORDER [None]
  - ECZEMA [None]
  - WHITE BLOOD CELL COUNT DECREASED [None]
  - NEUTROPENIA [None]
